FAERS Safety Report 20091275 (Version 1)
Quarter: 2021Q4

REPORT INFORMATION
  Report Type: Spontaneous
  Country: IT (occurrence: IT)
  Receive Date: 20211119
  Receipt Date: 20211119
  Transmission Date: 20220303
  Serious: Yes (Hospitalization, Other)
  Sender: FDA-Public Use
  Company Number: IT-SA-2021SA284620

PATIENT
  Age: 72 Year
  Sex: Male

DRUGS (10)
  1. INSULIN GLARGINE [Suspect]
     Active Substance: INSULIN GLARGINE
     Indication: Type 1 diabetes mellitus
     Dosage: 30 INTERNATIONAL UNIT, QD, LONG-ACTING BASAL-BOLUS 30 IU, HS
     Route: 040
  2. INSULIN LISPRO [Suspect]
     Active Substance: INSULIN LISPRO
     Indication: Type 1 diabetes mellitus
     Dosage: 8 INTERNATIONAL UNIT, BID SHORT-ACTING BASAL-BOLUS 8 IU, BID (AT BREAKFAST AND DINNER)
     Route: 040
  3. INSULIN LISPRO [Suspect]
     Active Substance: INSULIN LISPRO
     Dosage: 15 INTERNATIONAL UNIT, QD (AT LUNCH)
     Route: 040
  4. INSULIN LISPRO [Suspect]
     Active Substance: INSULIN LISPRO
     Dosage: SHORT-ACTING INSULIN DOSE WAS TAPERED
     Route: 040
  5. INSULIN LISPRO [Suspect]
     Active Substance: INSULIN LISPRO
     Dosage: INCREASING THE DOSES OF SHORT-ACTING INSULIN AT MEALS
     Route: 040
  6. FUROSEMIDE [Concomitant]
     Active Substance: FUROSEMIDE
     Dosage: UNK
  7. RANOLAZINE [Concomitant]
     Active Substance: RANOLAZINE
     Dosage: UNK
  8. EZETIMIBE [Concomitant]
     Active Substance: EZETIMIBE
     Dosage: UNK
  9. PREGABALIN [Concomitant]
     Active Substance: PREGABALIN
     Dosage: UNK
  10. METFORMIN [Concomitant]
     Active Substance: METFORMIN HYDROCHLORIDE
     Indication: Type 2 diabetes mellitus
     Dosage: UNK

REACTIONS (7)
  - Diabetes mellitus inadequate control [Recovered/Resolved]
  - Hyperglycaemia [Recovered/Resolved]
  - Metabolic syndrome [Recovered/Resolved]
  - Condition aggravated [Recovered/Resolved]
  - Obesity [Recovered/Resolved]
  - Increased appetite [Recovered/Resolved]
  - Hypoglycaemia [Recovered/Resolved]
